FAERS Safety Report 23098171 (Version 1)
Quarter: 2023Q4

REPORT INFORMATION
  Report Type: Spontaneous
  Country: US (occurrence: None)
  Receive Date: 20231018
  Receipt Date: 20231018
  Transmission Date: 20240110
  Serious: No
  Sender: FDA-Public Use
  Company Number: None

PATIENT
  Sex: Male
  Weight: 121.8 kg

DRUGS (2)
  1. VINCRISTINE SULFATE [Suspect]
     Active Substance: VINCRISTINE SULFATE
     Dates: end: 20230912
  2. VINORELBINE TARTRATE [Suspect]
     Active Substance: VINORELBINE TARTRATE
     Dates: end: 20230926

REACTIONS (1)
  - Peripheral sensorimotor neuropathy [None]

NARRATIVE: CASE EVENT DATE: 20231001
